FAERS Safety Report 7727348-7 (Version None)
Quarter: 2011Q3

REPORT INFORMATION
  Report Type: 
  Country: None (occurrence: None)
  Receive Date: 20110902
  Receipt Date: 20110829
  Transmission Date: 20111222
  Serious: Yes (Other)
  Sender: FDA-Public Use
  Company Number: CH-JNJFOC-20110802244

PATIENT
  Age: 45 Year
  Sex: Female

DRUGS (1)
  1. XARELTO [Suspect]
     Indication: ILL-DEFINED DISORDER
     Route: 048
     Dates: start: 20110627, end: 20110715

REACTIONS (3)
  - CHOLELITHIASIS [None]
  - CHOLESTASIS [None]
  - HEPATITIS [None]
